FAERS Safety Report 24092514 (Version 1)
Quarter: 2024Q3

REPORT INFORMATION
  Report Type: Spontaneous
  Country: US (occurrence: None)
  Receive Date: 20240712
  Receipt Date: 20240712
  Transmission Date: 20241016
  Serious: Yes (Other)
  Sender: Public
  Company Number: None

PATIENT
  Age: 67 Year
  Sex: Female
  Weight: 64.86 kg

DRUGS (1)
  1. DUPIXENT [Suspect]
     Active Substance: DUPILUMAB
     Indication: Eczema
     Dosage: 300 MG/MG EVERY 2 WEEKS SUBCUTANEOUS ?
     Route: 058
     Dates: start: 20231204, end: 20240326

REACTIONS (1)
  - Ulcer [None]

NARRATIVE: CASE EVENT DATE: 20240326
